FAERS Safety Report 19604749 (Version 1)
Quarter: 2021Q3

REPORT INFORMATION
  Report Type: Report from Study
  Country: BR (occurrence: BR)
  Receive Date: 20210724
  Receipt Date: 20210724
  Transmission Date: 20211014
  Serious: Yes (Death, Hospitalization, Other)
  Sender: FDA-Public Use
  Company Number: BR-SHIRE-SPV1-2009-01591

PATIENT
  Age: 12 Year
  Sex: Male
  Weight: 40.1 kg

DRUGS (10)
  1. HYDROXYZINE [Concomitant]
     Active Substance: HYDROXYZINE HYDROCHLORIDE
     Indication: PREMEDICATION
     Dosage: 7.5 ML, 1X/WEEK
     Route: 048
     Dates: start: 20080116
  2. GARDENAL [Concomitant]
     Active Substance: PHENOBARBITAL
     Indication: PRODUCT USED FOR UNKNOWN INDICATION
     Dosage: 50 GTT, 1X/DAY:QD
     Route: 065
  3. AMITRIPTYLINE [Concomitant]
     Active Substance: AMITRIPTYLINE
     Indication: SALIVARY HYPERSECRETION
     Dosage: 1 DF, 1X/DAY:QD
     Route: 048
     Dates: start: 20080729
  4. IDURSULFASE [Suspect]
     Active Substance: IDURSULFASE
     Dosage: UNK, 1/WEEK
     Route: 042
     Dates: start: 20070718, end: 20090704
  5. TEGRETOL [Concomitant]
     Active Substance: CARBAMAZEPINE
     Indication: NERVOUS SYSTEM DISORDER
     Dosage: 8.5 ML, 2X/DAY:BID
     Route: 065
     Dates: start: 20070827
  6. TEGRETOL [Concomitant]
     Active Substance: CARBAMAZEPINE
     Dosage: 7.5 ML, 2X/DAY:BID
     Route: 048
     Dates: start: 20070423, end: 20070827
  7. IDURSULFASE [Suspect]
     Active Substance: IDURSULFASE
     Indication: MUCOPOLYSACCHARIDOSIS II
     Dosage: UNK
     Route: 042
     Dates: start: 20070429
  8. TEGRETOL [Concomitant]
     Active Substance: CARBAMAZEPINE
     Dosage: 5 ML, 2X/DAY:BID
     Dates: start: 20070312, end: 20070423
  9. IDURSULFASE [Suspect]
     Active Substance: IDURSULFASE
     Dosage: 0.5 MG/KG, 1X/WEEK
     Route: 041
     Dates: start: 20070718, end: 20090527
  10. PARACETAMOL [Concomitant]
     Active Substance: ACETAMINOPHEN
     Indication: PREMEDICATION
     Dosage: 35 GTT, 1X/WEEK
     Route: 048
     Dates: start: 20080116

REACTIONS (3)
  - Pulmonary haemorrhage [Unknown]
  - Pneumonia [Unknown]
  - Respiratory failure [Fatal]

NARRATIVE: CASE EVENT DATE: 20090703
